FAERS Safety Report 4748444-2 (Version None)
Quarter: 2005Q3

REPORT INFORMATION
  Report Type: 
  Country: None (occurrence: None)
  Receive Date: 20050818
  Receipt Date: 20050411
  Transmission Date: 20060218
  Serious: Yes (Other)
  Sender: FDA-Public Use
  Company Number: MOBN20050003

PATIENT
  Age: 12 Year
  Sex: Female

DRUGS (2)
  1. MOBAN [Suspect]
  2. PAXIL [Suspect]

REACTIONS (2)
  - AKATHISIA [None]
  - NEUROLEPTIC MALIGNANT SYNDROME [None]
